FAERS Safety Report 5051642-4 (Version None)
Quarter: 2006Q3

REPORT INFORMATION
  Report Type: 
  Country: None (occurrence: None)
  Receive Date: 20060711
  Receipt Date: 20060627
  Transmission Date: 20061208
  Serious: Yes (Hospitalization)
  Sender: FDA-Public Use
  Company Number: 2006-144681-NL

PATIENT
  Age: 24 Year
  Sex: Female

DRUGS (5)
  1. NUVARING [Suspect]
     Indication: CONTRACEPTION
  2. PEG-INTRON [Suspect]
     Indication: HEPATITIS C
  3. RIBAVIRIN [Suspect]
     Indication: HEPATITIS C
  4. LEVAQUIN [Concomitant]
  5. LEXAPRO [Concomitant]

REACTIONS (5)
  - BACK PAIN [None]
  - METRORRHAGIA [None]
  - NAUSEA [None]
  - UTERINE SPASM [None]
  - WHITE BLOOD CELL COUNT DECREASED [None]
